FAERS Safety Report 13977565 (Version 1)
Quarter: 2017Q3

REPORT INFORMATION
  Report Type: Spontaneous
  Country: GB (occurrence: GB)
  Receive Date: 20170915
  Receipt Date: 20170915
  Transmission Date: 20171128
  Serious: Yes (Other)
  Sender: FDA-Public Use
  Company Number: GB-MYLANLABS-2017M1055917

PATIENT
  Sex: Female

DRUGS (1)
  1. ELLESTE SOLO [Suspect]
     Active Substance: ESTRADIOL
     Indication: PRODUCT USED FOR UNKNOWN INDICATION
     Dosage: UNK

REACTIONS (3)
  - Haemorrhage [Recovered/Resolved]
  - Hot flush [Recovered/Resolved]
  - Product quality issue [Unknown]
